FAERS Safety Report 15652561 (Version 1)
Quarter: 2018Q4

REPORT INFORMATION
  Report Type: Spontaneous
  Country: US (occurrence: US)
  Receive Date: 20181123
  Receipt Date: 20181123
  Transmission Date: 20190205
  Serious: No
  Sender: FDA-Public Use
  Company Number: US-FOUNDATIONCONSUMERHC-2018-US-016594

PATIENT
  Age: 25 Year
  Sex: Female
  Weight: 52.16 kg

DRUGS (5)
  1. AFTERA [Suspect]
     Active Substance: LEVONORGESTREL
     Indication: POST COITAL CONTRACEPTION
     Dosage: 1.5 MG PO
     Route: 048
     Dates: start: 20180902, end: 20180902
  2. XANAX [Concomitant]
     Active Substance: ALPRAZOLAM
  3. GABAPENTIN. [Concomitant]
     Active Substance: GABAPENTIN
  4. NORCO [Concomitant]
     Active Substance: ACETAMINOPHEN\HYDROCODONE BITARTRATE
  5. IRON [Concomitant]
     Active Substance: IRON

REACTIONS (5)
  - Menorrhagia [Recovered/Resolved]
  - Abdominal distension [Not Recovered/Not Resolved]
  - Dysmenorrhoea [Recovered/Resolved]
  - Menometrorrhagia [Recovered/Resolved]
  - Dysmenorrhoea [Not Recovered/Not Resolved]

NARRATIVE: CASE EVENT DATE: 20180917
